FAERS Safety Report 9605778 (Version 1)
Quarter: 2013Q4

REPORT INFORMATION
  Report Type: Spontaneous
  Country: US (occurrence: US)
  Receive Date: 20131008
  Receipt Date: 20131008
  Transmission Date: 20140711
  Serious: No
  Sender: FDA-Public Use
  Company Number: US-AMGEN-USASP2013049768

PATIENT
  Age: 70 Year
  Sex: Female

DRUGS (1)
  1. XGEVA [Suspect]
     Indication: BONE DISORDER

REACTIONS (3)
  - Pain in extremity [Recovered/Resolved]
  - Flatulence [Unknown]
  - Mucous stools [Unknown]
